FAERS Safety Report 16282446 (Version 3)
Quarter: 2019Q3

REPORT INFORMATION
  Report Type: Spontaneous
  Country: LB (occurrence: LB)
  Receive Date: 20190507
  Receipt Date: 20190704
  Transmission Date: 20191004
  Serious: Yes (Hospitalization)
  Sender: FDA-Public Use
  Company Number: LB-ASTELLAS-2019US017375

PATIENT
  Age: 8 Decade
  Sex: Male

DRUGS (1)
  1. BETMIGA [Suspect]
     Active Substance: MIRABEGRON
     Indication: HYPERTONIC BLADDER
     Route: 048

REACTIONS (9)
  - Peripheral coldness [Recovering/Resolving]
  - Diarrhoea [Recovered/Resolved]
  - Poor quality product administered [Unknown]
  - Constipation [Unknown]
  - Yellow skin [Recovering/Resolving]
  - Fatigue [Recovering/Resolving]
  - Incontinence [Recovered/Resolved]
  - Product physical issue [Unknown]
  - Slow response to stimuli [Recovering/Resolving]

NARRATIVE: CASE EVENT DATE: 20190416
